FAERS Safety Report 16553278 (Version 2)
Quarter: 2019Q3

REPORT INFORMATION
  Report Type: Spontaneous
  Country: CA (occurrence: CA)
  Receive Date: 20190710
  Receipt Date: 20190716
  Transmission Date: 20191004
  Serious: Yes (Hospitalization, Other)
  Sender: FDA-Public Use
  Company Number: CA-ABBVIE-19K-028-2847073-00

PATIENT
  Age: 56 Year
  Sex: Male

DRUGS (18)
  1. PREDNISONE. [Suspect]
     Active Substance: PREDNISONE
     Route: 065
     Dates: start: 2019, end: 2019
  2. METRONIDAZOLE. [Concomitant]
     Active Substance: METRONIDAZOLE
     Indication: PRODUCT USED FOR UNKNOWN INDICATION
  3. IMURAN [Suspect]
     Active Substance: AZATHIOPRINE
     Indication: PRODUCT USED FOR UNKNOWN INDICATION
     Route: 048
     Dates: start: 2017, end: 2017
  4. SOLU-MEDROL [Concomitant]
     Active Substance: METHYLPREDNISOLONE SODIUM SUCCINATE
     Route: 042
  5. CALCIUM [Concomitant]
     Active Substance: CALCIUM
     Indication: PRODUCT USED FOR UNKNOWN INDICATION
  6. HUMIRA [Suspect]
     Active Substance: ADALIMUMAB
     Indication: CROHN^S DISEASE
     Route: 058
     Dates: start: 2017, end: 201812
  7. PREDNISONE. [Suspect]
     Active Substance: PREDNISONE
     Indication: PRODUCT USED FOR UNKNOWN INDICATION
     Route: 065
     Dates: start: 20190524, end: 2019
  8. METHOTREXATE. [Concomitant]
     Active Substance: METHOTREXATE
     Indication: PRODUCT USED FOR UNKNOWN INDICATION
     Route: 048
     Dates: start: 20190626
  9. ATACAND [Concomitant]
     Active Substance: CANDESARTAN CILEXETIL
     Indication: PRODUCT USED FOR UNKNOWN INDICATION
     Route: 048
  10. DILTIAZEM HCL [Concomitant]
     Active Substance: DILTIAZEM HYDROCHLORIDE
     Indication: PRODUCT USED FOR UNKNOWN INDICATION
  11. VITAMIN D [Concomitant]
     Active Substance: VITAMIN D NOS
     Indication: PRODUCT USED FOR UNKNOWN INDICATION
  12. IRBESARTAN. [Concomitant]
     Active Substance: IRBESARTAN
     Indication: PRODUCT USED FOR UNKNOWN INDICATION
  13. IRON [Concomitant]
     Active Substance: IRON
     Indication: PRODUCT USED FOR UNKNOWN INDICATION
  14. PREDNISONE. [Suspect]
     Active Substance: PREDNISONE
     Route: 065
     Dates: start: 2019
  15. AMLODIPINE [Concomitant]
     Active Substance: AMLODIPINE BESYLATE
     Indication: PRODUCT USED FOR UNKNOWN INDICATION
     Route: 048
  16. SOLU-MEDROL [Concomitant]
     Active Substance: METHYLPREDNISOLONE SODIUM SUCCINATE
     Indication: PRODUCT USED FOR UNKNOWN INDICATION
     Route: 042
     Dates: start: 201812, end: 201812
  17. INFLECTRA [Concomitant]
     Active Substance: INFLIXIMAB-DYYB
     Indication: CROHN^S DISEASE
     Route: 042
  18. CANDESARTAN. [Concomitant]
     Active Substance: CANDESARTAN
     Indication: PRODUCT USED FOR UNKNOWN INDICATION

REACTIONS (50)
  - Large intestine polyp [Unknown]
  - Sacroiliitis [Unknown]
  - Tubulointerstitial nephritis [Unknown]
  - Blood creatinine increased [Unknown]
  - Red blood cell count decreased [Unknown]
  - Asthenia [Recovered/Resolved]
  - Crohn^s disease [Unknown]
  - Arthralgia [Unknown]
  - Leukopenia [Unknown]
  - Intestinal resection [Unknown]
  - Fatigue [Unknown]
  - Lipase increased [Unknown]
  - Lymphocyte count decreased [Unknown]
  - Pain [Unknown]
  - Vomiting [Unknown]
  - Abdominal pain [Unknown]
  - Ulcer [Unknown]
  - Abdominal distension [Unknown]
  - Musculoskeletal stiffness [Unknown]
  - Arthritis [Unknown]
  - Eructation [Unknown]
  - Flatulence [Unknown]
  - Renal cyst [Unknown]
  - Therapeutic response shortened [Unknown]
  - Abdominal pain upper [Unknown]
  - Ileal stenosis [Unknown]
  - Ultrasound liver abnormal [Unknown]
  - Nephropathy [Unknown]
  - Bowel movement irregularity [Recovered/Resolved]
  - Cholelithiasis [Unknown]
  - Gastrointestinal wall thickening [Unknown]
  - Constipation [Unknown]
  - Neutrophil count increased [Unknown]
  - White blood cell count increased [Unknown]
  - Gastrointestinal inflammation [Unknown]
  - Stenosis [Unknown]
  - Monocyte count [Unknown]
  - C-reactive protein increased [Unknown]
  - Lymphopenia [Unknown]
  - Diarrhoea [Unknown]
  - Hypertension [Unknown]
  - Hospitalisation [Unknown]
  - Inguinal hernia [Unknown]
  - Red cell distribution width increased [Unknown]
  - Pancreatic disorder [Unknown]
  - Haematocrit decreased [Unknown]
  - Haemoglobin decreased [Unknown]
  - Back pain [Unknown]
  - Headache [Unknown]
  - Drug ineffective [Unknown]

NARRATIVE: CASE EVENT DATE: 201812
